FAERS Safety Report 15339042 (Version 5)
Quarter: 2018Q4

REPORT INFORMATION
  Report Type: Report from Study
  Country: FI (occurrence: FI)
  Receive Date: 20180831
  Receipt Date: 20181005
  Transmission Date: 20190204
  Serious: Yes (Life-Threatening, Hospitalization, Other)
  Sender: FDA-Public Use
  Company Number: FI-PFIZER INC-2018348668

PATIENT
  Age: 48 Year
  Sex: Male

DRUGS (21)
  1. TEMESTA (LORAZEPAM) [Suspect]
     Active Substance: LORAZEPAM
     Indication: ANXIETY
     Dosage: 1 MG, 1X/DAY
  2. LEPONEX [Suspect]
     Active Substance: CLOZAPINE
     Indication: SCHIZOPHRENIA
     Dosage: 300 MG, 1X/DAY
     Dates: start: 2002, end: 2018
  3. LYRICA [Concomitant]
     Active Substance: PREGABALIN
     Dosage: UNK
  4. PRIMASPAN [Concomitant]
     Active Substance: ASPIRIN
     Dosage: UNK
  5. VANCOMYCIN HCL [Suspect]
     Active Substance: VANCOMYCIN HYDROCHLORIDE
     Dosage: UNK
  6. TEMESTA (LORAZEPAM) [Suspect]
     Active Substance: LORAZEPAM
     Dosage: 0.5 MG, 3X/DAY
     Dates: start: 2007
  7. LEPONEX [Suspect]
     Active Substance: CLOZAPINE
     Dosage: UNK
     Dates: start: 201608
  8. LEPONEX [Suspect]
     Active Substance: CLOZAPINE
     Dosage: UNK
     Dates: start: 20180710, end: 20180712
  9. ANAFRANIL [Concomitant]
     Active Substance: CLOMIPRAMINE HYDROCHLORIDE
     Dosage: UNK
  10. BISOPROACT [Concomitant]
     Active Substance: BISOPROLOL
     Dosage: UNK
  11. KLEXANE [Concomitant]
     Active Substance: ENOXAPARIN
     Dosage: UNK
  12. LEPONEX [Suspect]
     Active Substance: CLOZAPINE
     Dosage: UNK
     Dates: start: 20180717, end: 2018
  13. FLIXOTIDE EVOHALER [Concomitant]
     Active Substance: FLUTICASONE PROPIONATE
     Dosage: UNK
  14. KALISOL [Concomitant]
     Dosage: UNK
  15. ZYVOXID [Concomitant]
     Active Substance: LINEZOLID
     Dosage: UNK
  16. OLANZAPIN ORION [Concomitant]
     Active Substance: OLANZAPINE
     Dosage: UNK
  17. VANCOMYCIN HCL [Suspect]
     Active Substance: VANCOMYCIN HYDROCHLORIDE
     Indication: WOUND INFECTION
     Dosage: UNK
     Dates: start: 20180621, end: 20180712
  18. LEPONEX [Suspect]
     Active Substance: CLOZAPINE
     Dosage: 300 MG, 1X/DAY
     Dates: start: 2006
  19. CITALOPRAM [Suspect]
     Active Substance: CITALOPRAM HYDROBROMIDE
     Dosage: 80 MG, 1X/DAY
  20. CITALOPRAM [Suspect]
     Active Substance: CITALOPRAM HYDROBROMIDE
     Dosage: 20 MG, 1X/DAY
     Dates: start: 2006
  21. MAGNESIUM [Concomitant]
     Active Substance: MAGNESIUM
     Dosage: UNK

REACTIONS (8)
  - Neutropenia [Recovered/Resolved]
  - Suicide attempt [Recovered/Resolved]
  - Mental impairment [Not Recovered/Not Resolved]
  - Multiple fractures [Unknown]
  - Wound infection bacterial [Recovered/Resolved]
  - Incoherent [Unknown]
  - Tangentiality [Unknown]
  - Confusional state [Recovering/Resolving]

NARRATIVE: CASE EVENT DATE: 2018
